FAERS Safety Report 14734748 (Version 4)
Quarter: 2019Q3

REPORT INFORMATION
  Report Type: Spontaneous
  Country: US (occurrence: US)
  Receive Date: 20180409
  Receipt Date: 20190717
  Transmission Date: 20191004
  Serious: Yes (Other)
  Sender: FDA-Public Use
  Company Number: US-ASTRAZENECA-2018SE43731

PATIENT
  Sex: Female
  Weight: 105.7 kg

DRUGS (43)
  1. PRILOSEC [Suspect]
     Active Substance: OMEPRAZOLE MAGNESIUM
     Indication: GASTROOESOPHAGEAL REFLUX DISEASE
     Route: 048
     Dates: start: 2012, end: 2018
  2. NEXIUM [Suspect]
     Active Substance: ESOMEPRAZOLE MAGNESIUM
     Indication: GASTROOESOPHAGEAL REFLUX DISEASE
     Dosage: GENERIC
     Route: 065
     Dates: start: 2015, end: 2018
  3. PRAVASTATIN. [Concomitant]
     Active Substance: PRAVASTATIN
     Indication: BLOOD CHOLESTEROL INCREASED
     Dates: start: 2011, end: 2012
  4. TIZANIDINE/ ZANAFLEX [Concomitant]
     Indication: MUSCLE SPASMS
     Dates: start: 2015, end: 2016
  5. VITAMIN D3 [Concomitant]
     Active Substance: CHOLECALCIFEROL
     Dates: start: 2015
  6. ROLAIDS [Concomitant]
     Active Substance: CALCIUM CARBONATE\MAGNESIUM HYDROXIDE
  7. ISOSORBIDE MONONITRATE. [Concomitant]
     Active Substance: ISOSORBIDE MONONITRATE
     Dates: start: 20171218
  8. TOPROL XL [Concomitant]
     Active Substance: METOPROLOL SUCCINATE
     Dates: start: 20171218
  9. QVAR [Concomitant]
     Active Substance: BECLOMETHASONE DIPROPIONATE
  10. MUCINEX [Concomitant]
     Active Substance: GUAIFENESIN
  11. MELOXICAM. [Concomitant]
     Active Substance: MELOXICAM
     Indication: OSTEOARTHRITIS
     Dates: start: 2011
  12. ALBUTEROL. [Concomitant]
     Active Substance: ALBUTEROL
  13. QUETIAPINE. [Concomitant]
     Active Substance: QUETIAPINE
  14. VICTOZA [Concomitant]
     Active Substance: LIRAGLUTIDE
  15. MONTELUKAST [Concomitant]
     Active Substance: MONTELUKAST SODIUM
     Dates: start: 20160811
  16. FLEXERIL [Concomitant]
     Active Substance: CYCLOBENZAPRINE HYDROCHLORIDE
  17. PRILOSEC [Suspect]
     Active Substance: OMEPRAZOLE MAGNESIUM
     Indication: GASTROOESOPHAGEAL REFLUX DISEASE
     Dosage: GENERIC
     Route: 065
     Dates: start: 2016, end: 2018
  18. FUROSEMIDE. [Concomitant]
     Active Substance: FUROSEMIDE
     Indication: FLUID RETENTION
     Dates: start: 2011
  19. LANTUS [Concomitant]
     Active Substance: INSULIN GLARGINE
     Indication: DIABETES MELLITUS
     Dates: start: 2014
  20. CEPHALEXIN. [Concomitant]
     Active Substance: CEPHALEXIN
     Indication: INFECTION
     Dates: start: 2012
  21. TRAZODONE [Concomitant]
     Active Substance: TRAZODONE HYDROCHLORIDE
  22. JANUVIA [Concomitant]
     Active Substance: SITAGLIPTIN PHOSPHATE
     Indication: DIABETES MELLITUS
  23. ASPIRIN. [Concomitant]
     Active Substance: ASPIRIN
     Dates: start: 2016
  24. SEROQUEL [Concomitant]
     Active Substance: QUETIAPINE FUMARATE
     Dates: start: 20171218
  25. CRESTOR [Concomitant]
     Active Substance: ROSUVASTATIN CALCIUM
     Dates: start: 20140818
  26. NEXIUM [Suspect]
     Active Substance: ESOMEPRAZOLE MAGNESIUM
     Indication: GASTROOESOPHAGEAL REFLUX DISEASE
     Route: 048
     Dates: start: 2012, end: 2018
  27. PRILOSEC [Suspect]
     Active Substance: OMEPRAZOLE MAGNESIUM
     Indication: GASTROOESOPHAGEAL REFLUX DISEASE
     Dosage: GENERIC
     Route: 048
     Dates: start: 20170127
  28. METOPROLOL. [Concomitant]
     Active Substance: METOPROLOL
     Indication: HYPERTENSION
     Dates: start: 2016
  29. LISINOPRIL. [Concomitant]
     Active Substance: LISINOPRIL
     Indication: HYPERTENSION
     Dates: start: 2011, end: 2012
  30. LYRICA [Concomitant]
     Active Substance: PREGABALIN
     Indication: NEURALGIA
     Dates: start: 2014, end: 2016
  31. METFORMIN [Concomitant]
     Active Substance: METFORMIN HYDROCHLORIDE
     Indication: DIABETES MELLITUS
     Dates: start: 2011
  32. MYLANTA [Concomitant]
     Active Substance: ALUMINUM HYDROXIDE\DIMETHICONE\MAGNESIUM HYDROXIDE
     Dates: start: 1970
  33. KETOPROFEN. [Concomitant]
     Active Substance: KETOPROFEN
     Dates: start: 20161219
  34. BUSPIRONE [Concomitant]
     Active Substance: BUSPIRONE HYDROCHLORIDE
     Dates: start: 20140818
  35. NOVOLOG [Concomitant]
     Active Substance: INSULIN ASPART
     Dosage: 100 UNITS/ML
     Dates: start: 20160830
  36. NITROGLYCERIN. [Concomitant]
     Active Substance: NITROGLYCERIN
  37. METHOCARBAMOL. [Concomitant]
     Active Substance: METHOCARBAMOL
  38. NEXIUM [Suspect]
     Active Substance: ESOMEPRAZOLE MAGNESIUM
     Indication: GASTROOESOPHAGEAL REFLUX DISEASE
     Dosage: GENERIC
     Route: 065
     Dates: start: 2012, end: 2018
  39. NEXIUM [Suspect]
     Active Substance: ESOMEPRAZOLE MAGNESIUM
     Indication: GASTROOESOPHAGEAL REFLUX DISEASE
     Route: 048
     Dates: start: 20120709
  40. PEPCID [Concomitant]
     Active Substance: FAMOTIDINE
     Dates: start: 2012
  41. TUMS [Concomitant]
     Active Substance: CALCIUM CARBONATE
  42. ROSUVASTATIN. [Concomitant]
     Active Substance: ROSUVASTATIN
  43. TRAMADOL. [Concomitant]
     Active Substance: TRAMADOL

REACTIONS (3)
  - Chronic kidney disease [Not Recovered/Not Resolved]
  - Renal failure [Unknown]
  - Diabetic nephropathy [Unknown]
